FAERS Safety Report 9951714 (Version 2)
Quarter: 2014Q1

REPORT INFORMATION
  Report Type: Report from Study
  Country: US (occurrence: US)
  Receive Date: 20140304
  Receipt Date: 20140304
  Transmission Date: 20141002
  Serious: No
  Sender: FDA-Public Use
  Company Number: US-ABBVIE-13P-163-1051864-00

PATIENT
  Age: 72 Year
  Sex: Female

DRUGS (21)
  1. HUMIRA [Suspect]
     Indication: CROHN^S DISEASE
     Dates: start: 20121219
  2. METFORMIN [Suspect]
     Indication: TYPE 2 DIABETES MELLITUS
     Dates: end: 20130405
  3. METFORMIN [Suspect]
     Dates: start: 20130406
  4. CRESTOR [Concomitant]
     Indication: ARTERIAL DISORDER
  5. LOSARTAN [Concomitant]
     Indication: HYPERTENSION
  6. CHLORTHALIDONE [Concomitant]
     Indication: HYPERTENSION
  7. CHLORTHALIDONE [Concomitant]
     Indication: CARDIOVASCULAR EVENT PROPHYLAXIS
  8. ASA [Concomitant]
     Indication: CARDIOVASCULAR EVENT PROPHYLAXIS
  9. ASA [Concomitant]
     Indication: ARTHRITIS
  10. VITAMIN D [Concomitant]
     Indication: PRODUCT USED FOR UNKNOWN INDICATION
  11. VITAMIN B6 [Concomitant]
     Indication: ARTHROPATHY
  12. BIOTIN [Concomitant]
     Indication: SKIN DISORDER
  13. FOLIC ACID [Concomitant]
     Indication: PRODUCT USED FOR UNKNOWN INDICATION
  14. COQ10 [Concomitant]
     Indication: MUSCLE SPASMS
  15. POTASSIUM MAGNESIUM ASPARTATE [Concomitant]
     Indication: BLOOD POTASSIUM DECREASED
  16. POTASSIUM MAGNESIUM ASPARTATE [Concomitant]
     Indication: MUSCLE SPASMS
  17. POTASSIUM MAGNESIUM ASPARTATE [Concomitant]
     Indication: CARDIOVASCULAR EVENT PROPHYLAXIS
  18. ATENOLOL [Concomitant]
     Indication: CARDIAC DISORDER
  19. LANTUS [Concomitant]
     Indication: DIABETES MELLITUS
     Dosage: AT NIGHT/30 UNITS SLIDING SCALE
  20. HUMALOG [Concomitant]
     Indication: DIABETES MELLITUS
     Dosage: 6-8 UNITS/SLIDING SCALE, WITH MEALS
  21. PANTOTHENIC ACID [Concomitant]
     Indication: ARTHROPATHY

REACTIONS (12)
  - Blood glucose increased [Not Recovered/Not Resolved]
  - Injection site erythema [Recovered/Resolved]
  - Injection site papule [Not Recovered/Not Resolved]
  - Injection site pruritus [Recovered/Resolved]
  - Injection site warmth [Recovered/Resolved]
  - Rash macular [Unknown]
  - Liver function test abnormal [Not Recovered/Not Resolved]
  - Injection site reaction [Not Recovered/Not Resolved]
  - Injection site swelling [Not Recovered/Not Resolved]
  - Injection site erythema [Not Recovered/Not Resolved]
  - Injection site warmth [Not Recovered/Not Resolved]
  - Injection site pruritus [Not Recovered/Not Resolved]
